FAERS Safety Report 6619018-3 (Version None)
Quarter: 2010Q1

REPORT INFORMATION
  Report Type: 
  Country: None (occurrence: None)
  Receive Date: 20100308
  Receipt Date: 20100303
  Transmission Date: 20100710
  Serious: Yes (Death, Other)
  Sender: FDA-Public Use
  Company Number: PL-TYCO HEALTHCARE/MALLINCKRODT-T201000696

PATIENT

DRUGS (2)
  1. METHADOSE [Suspect]
     Dosage: UNK
     Route: 064
  2. METHADOSE [Suspect]
     Dosage: UNK
     Route: 063

REACTIONS (13)
  - ASTHENIA [None]
  - DRUG EXPOSURE DURING PREGNANCY [None]
  - DRUG WITHDRAWAL SYNDROME NEONATAL [None]
  - ECCHYMOSIS [None]
  - HYPOTONIA NEONATAL [None]
  - INTOXICATION BY BREAST FEEDING [None]
  - LUNG DISORDER [None]
  - MATERNAL DRUGS AFFECTING FOETUS [None]
  - NEONATAL ASPIRATION [None]
  - OBSTRUCTIVE AIRWAYS DISORDER [None]
  - PALLOR [None]
  - REGURGITATION [None]
  - WITHDRAWAL SYNDROME [None]
